FAERS Safety Report 23056772 (Version 1)
Quarter: 2023Q4

REPORT INFORMATION
  Report Type: Spontaneous
  Country: IT (occurrence: IT)
  Receive Date: 20231012
  Receipt Date: 20231012
  Transmission Date: 20240109
  Serious: Yes (Hospitalization, Other)
  Sender: FDA-Public Use
  Company Number: IT-ABPPROD-2023-000553

PATIENT
  Age: 80 Year
  Sex: Male

DRUGS (3)
  1. CINACALCET [Suspect]
     Active Substance: CINACALCET
     Indication: Product used for unknown indication
     Dosage: 60 MILLIGRAM
     Route: 065
  2. CLODRONATE DISODIUM [Suspect]
     Active Substance: CLODRONATE DISODIUM
     Indication: Hypercalcaemia
     Dosage: UNK
     Route: 042
  3. ZOLEDRONIC ACID [Suspect]
     Active Substance: ZOLEDRONIC ACID
     Indication: Product used for unknown indication
     Dosage: 4 MILLIGRAM
     Route: 042

REACTIONS (2)
  - Renal impairment [Recovered/Resolved]
  - Drug ineffective [Recovered/Resolved]
